FAERS Safety Report 5734047-X (Version None)
Quarter: 2008Q2

REPORT INFORMATION
  Report Type: 
  Country: None (occurrence: None)
  Receive Date: 20080509
  Receipt Date: 20080501
  Transmission Date: 20081010
  Serious: Yes (Other)
  Sender: FDA-Public Use
  Company Number: US-PFIZER INC-2008038365

PATIENT
  Sex: Female
  Weight: 49.09 kg

DRUGS (5)
  1. CELEBREX [Suspect]
     Indication: ARTHRITIS
  2. CELEBREX [Suspect]
     Indication: INFLAMMATION
  3. BEXTRA [Suspect]
  4. FLEXERIL [Concomitant]
  5. CYMBALTA [Concomitant]

REACTIONS (4)
  - PRURITUS [None]
  - SKIN EXFOLIATION [None]
  - SPINAL OPERATION [None]
  - SWELLING FACE [None]
